FAERS Safety Report 5966024-8 (Version None)
Quarter: 2008Q4

REPORT INFORMATION
  Report Type: 
  Country: None (occurrence: None)
  Receive Date: 20081125
  Receipt Date: 20081110
  Transmission Date: 20090506
  Serious: Yes (Hospitalization)
  Sender: FDA-Public Use
  Company Number: IL-GENENTECH-271879

PATIENT
  Age: 78 Year
  Sex: Male

DRUGS (5)
  1. MABTHERA [Suspect]
     Indication: WALDENSTROM'S MACROGLOBULINAEMIA
     Dosage: UNK
     Route: 042
  2. CYCLOPHOSPHAMIDE [Concomitant]
     Indication: DRUG USE FOR UNKNOWN INDICATION
  3. DOXORUBICIN HCL [Concomitant]
     Indication: DRUG USE FOR UNKNOWN INDICATION
  4. PREDNISONE TAB [Concomitant]
     Indication: DRUG USE FOR UNKNOWN INDICATION
  5. VINCRISTINE [Concomitant]
     Indication: DRUG USE FOR UNKNOWN INDICATION

REACTIONS (1)
  - PROGRESSIVE MULTIFOCAL LEUKOENCEPHALOPATHY [None]
